FAERS Safety Report 6196277-5 (Version None)
Quarter: 2009Q2

REPORT INFORMATION
  Report Type: 
  Country: None (occurrence: None)
  Receive Date: 20090515
  Receipt Date: 20080820
  Transmission Date: 20091009
  Serious: Yes (Other)
  Sender: FDA-Public Use
  Company Number: 08-213

PATIENT
  Age: 55 Year
  Sex: Female

DRUGS (12)
  1. FAZACLO ODT [Suspect]
     Indication: PSYCHOTIC DISORDER
     Dosage: 150 MG DAILY PO
     Route: 048
     Dates: start: 20080707, end: 20080820
  2. LORAZEPAM [Concomitant]
  3. NEXIUM [Concomitant]
  4. COMBIVENT [Concomitant]
  5. ASPIRIN [Concomitant]
  6. COLACE [Concomitant]
  7. LISINOPRIL [Concomitant]
  8. SEROQUEL [Concomitant]
  9. DEPAKOTE ER [Concomitant]
  10. RISPERDAL [Concomitant]
  11. SPIRIVA [Concomitant]
  12. ALBUTEROL [Concomitant]

REACTIONS (1)
  - AGRANULOCYTOSIS [None]
